FAERS Safety Report 6924207-4 (Version None)
Quarter: 2010Q3

REPORT INFORMATION
  Report Type: 
  Country: None (occurrence: None)
  Receive Date: 20100812
  Receipt Date: 20100812
  Transmission Date: 20110219
  Serious: No
  Sender: FDA-Public Use
  Company Number: None

PATIENT
  Sex: Male
  Weight: 87.5 kg

DRUGS (10)
  1. MEMANTINE [Suspect]
     Dates: start: 20070701, end: 20070701
  2. MEMANTINE [Suspect]
     Dates: start: 20100501, end: 20100501
  3. DECADRON [Concomitant]
  4. DIGOXIN [Concomitant]
  5. FOLIC ACID [Concomitant]
  6. PEPCID [Concomitant]
  7. SIMVASTATIN [Concomitant]
  8. SYMBICORT [Concomitant]
  9. VICODIN [Concomitant]
  10. KEPPRA [Concomitant]

REACTIONS (6)
  - ALTERED STATE OF CONSCIOUSNESS [None]
  - CEREBRAL ISCHAEMIA [None]
  - CONVULSION [None]
  - GAIT DISTURBANCE [None]
  - PYREXIA [None]
  - RESPIRATORY DISTRESS [None]
